FAERS Safety Report 6061521-1 (Version None)
Quarter: 2009Q1

REPORT INFORMATION
  Report Type: 
  Country: None (occurrence: None)
  Receive Date: 20090202
  Receipt Date: 20090121
  Transmission Date: 20090719
  Serious: Yes (Other)
  Sender: FDA-Public Use
  Company Number: US-AVENTIS-200910583US

PATIENT
  Age: 52 Year
  Sex: Female

DRUGS (4)
  1. LOVENOX [Suspect]
     Indication: THROMBOSIS PROPHYLAXIS
     Dosage: DOSE: UNK
     Route: 058
     Dates: start: 20080401, end: 20080501
  2. HEPARIN [Suspect]
     Indication: THROMBOSIS PROPHYLAXIS
     Dosage: DOSE: UNK
     Dates: start: 20080101, end: 20080101
  3. COUMADIN [Concomitant]
     Route: 048
     Dates: start: 20080401
  4. TRIAMTERENE [Concomitant]
     Dosage: DOSE: UNK

REACTIONS (2)
  - HEPATIC ENZYME INCREASED [None]
  - HEPATITIS C [None]
